FAERS Safety Report 18078054 (Version 1)
Quarter: 2020Q3

REPORT INFORMATION
  Report Type: Spontaneous
  Country: US (occurrence: US)
  Receive Date: 20200727
  Receipt Date: 20200727
  Transmission Date: 20201103
  Serious: Yes (Other)
  Sender: FDA-Public Use
  Company Number: US-SEATTLE GENETICS-2020SGN02332

PATIENT
  Sex: Female

DRUGS (2)
  1. TUKYSA [Suspect]
     Active Substance: TUCATINIB
     Indication: BREAST NEOPLASM
     Dosage: UNK
  2. TUKYSA [Suspect]
     Active Substance: TUCATINIB
     Dosage: 300 MG IN MORNING, 150 MG IN EVENING

REACTIONS (8)
  - Dizziness [Unknown]
  - Drug-induced liver injury [Unknown]
  - Diarrhoea [Unknown]
  - Hepatic enzyme increased [Unknown]
  - Dermatitis [Unknown]
  - Unevaluable event [Unknown]
  - Nausea [Unknown]
  - Product dose omission issue [Unknown]
